FAERS Safety Report 11800303 (Version 1)
Quarter: 2015Q4

REPORT INFORMATION
  Report Type: Spontaneous
  Country: US (occurrence: US)
  Receive Date: 20151203
  Receipt Date: 20151203
  Transmission Date: 20160305
  Serious: No
  Sender: FDA-Public Use
  Company Number: US-UCBSA-2014004404

PATIENT
  Age: 71 Year
  Sex: Female
  Weight: 58.96 kg

DRUGS (9)
  1. VALTREX [Concomitant]
     Active Substance: VALACYCLOVIR HYDROCHLORIDE
     Indication: HERPES ZOSTER
     Dosage: 1 G, ONCE DAILY (QD)
     Route: 048
     Dates: start: 2009
  2. METHIMAZOLE. [Concomitant]
     Active Substance: METHIMAZOLE
     Indication: HYPERTHYROIDISM
     Dosage: 0.5 MG, 2 TO 3 TIMES OF WEEK
     Dates: start: 2007
  3. EFFEXOR [Suspect]
     Active Substance: VENLAFAXINE HYDROCHLORIDE
     Indication: POST-TRAUMATIC STRESS DISORDER
  4. SAVELLA [Concomitant]
     Active Substance: MILNACIPRAN HYDROCHLORIDE
     Indication: FIBROMYALGIA
     Dosage: 6 MG, ONCE DAILY (QD)
  5. CARDIZEM CD [Concomitant]
     Active Substance: DILTIAZEM HYDROCHLORIDE
     Indication: PRINZMETAL ANGINA
     Dosage: 240 MG, ONCE DAILY (QD) MEDICATION WAS STARTED WHEN IT WAS FIRST APPROVED AND AVAILABLE IN MARKET
     Dates: start: 1980
  6. ISOSORBIDE MONONITRATE EXTENDED-RELEASE TABLET USP [Suspect]
     Active Substance: ISOSORBIDE MONONITRATE
     Indication: PRINZMETAL ANGINA
     Dosage: 30 MG, ONCE DAILY (QD)
     Route: 048
     Dates: start: 201406, end: 20140630
  7. ROPINIROLE. [Concomitant]
     Active Substance: ROPINIROLE
     Indication: RESTLESS LEGS SYNDROME
     Dosage: 0.032 MG, ONCE DAILY (QD)
     Dates: start: 2008
  8. EFFEXOR [Suspect]
     Active Substance: VENLAFAXINE HYDROCHLORIDE
     Indication: DEPRESSION
     Dosage: 37.5 MG, ONCE DAILY (QD) (STARTED 1 WEEK BEFORE ISMN ER)
     Route: 048
     Dates: start: 201406
  9. LORAZEPAM. [Concomitant]
     Active Substance: LORAZEPAM
     Indication: FIBROMYALGIA
     Dosage: HAS BEEN IN THIS MEDICATION FOR 20 YEARS
     Route: 048

REACTIONS (4)
  - Urticaria [Recovered/Resolved]
  - Fatigue [Recovered/Resolved]
  - Dizziness [Recovered/Resolved]
  - Asthenia [Recovered/Resolved]

NARRATIVE: CASE EVENT DATE: 201406
